FAERS Safety Report 17068111 (Version 1)
Quarter: 2019Q4

REPORT INFORMATION
  Report Type: Spontaneous
  Country: US (occurrence: US)
  Receive Date: 20191122
  Receipt Date: 20191122
  Transmission Date: 20200122
  Serious: No
  Sender: FDA-Public Use
  Company Number: NVSC2019US044739

PATIENT
  Sex: Female

DRUGS (1)
  1. TACROLIMUS. [Suspect]
     Active Substance: TACROLIMUS
     Indication: VULVOVAGINAL PRURITUS
     Dosage: UNK 1/2INCH
     Route: 065

REACTIONS (1)
  - Vulvovaginal pruritus [Unknown]
